FAERS Safety Report 9300133 (Version 2)
Quarter: 2013Q2

REPORT INFORMATION
  Report Type: Spontaneous
  Country: US (occurrence: US)
  Receive Date: 20130521
  Receipt Date: 20130607
  Transmission Date: 20140414
  Serious: Yes (Other)
  Sender: FDA-Public Use
  Company Number: US-PERRIGO-13US005198

PATIENT
  Sex: Female

DRUGS (1)
  1. MINOXIDIL 2% WOMEN 202 [Suspect]
     Indication: ALOPECIA
     Dosage: UNK, ONCE DAILY
     Route: 061
     Dates: start: 20130508, end: 20130509

REACTIONS (7)
  - VIIth nerve paralysis [Not Recovered/Not Resolved]
  - Paraesthesia [Not Recovered/Not Resolved]
  - Hypoaesthesia [Not Recovered/Not Resolved]
  - Headache [Recovering/Resolving]
  - Wrong technique in drug usage process [Unknown]
  - Inappropriate schedule of drug administration [Unknown]
  - Incorrect dose administered [Unknown]
